FAERS Safety Report 7138856-4 (Version None)
Quarter: 2010Q4

REPORT INFORMATION
  Report Type: 
  Country: None (occurrence: None)
  Receive Date: 20101206
  Receipt Date: 20101116
  Transmission Date: 20110411
  Serious: No
  Sender: FDA-Public Use
  Company Number: US-B.I. PHARMACEUTICALS,INC./RIDGEFIELD-2010-BP-12836BP

PATIENT
  Sex: Male

DRUGS (1)
  1. TWYNSTA [Suspect]
     Route: 048

REACTIONS (2)
  - EYE DISORDER [None]
  - OCULAR HYPERAEMIA [None]
